FAERS Safety Report 10472223 (Version 1)
Quarter: 2014Q3

REPORT INFORMATION
  Report Type: Spontaneous
  Country: US (occurrence: None)
  Receive Date: 20140923
  Receipt Date: 20140923
  Transmission Date: 20150326
  Serious: Yes (Disabling)
  Sender: FDA-Public Use
  Company Number: None

PATIENT
  Age: 38 Year
  Sex: Female
  Weight: 53.52 kg

DRUGS (1)
  1. COPAXONE [Suspect]
     Active Substance: GLATIRAMER ACETATE
     Indication: MULTIPLE SCLEROSIS
     Dosage: 1 SHOT, 3X WEEK, GIVEN INTO/UNDER THE SKIN
     Dates: start: 20140904, end: 20140917

REACTIONS (6)
  - Application site reaction [None]
  - Tremor [None]
  - Pain in extremity [None]
  - Chills [None]
  - Gait disturbance [None]
  - Nausea [None]

NARRATIVE: CASE EVENT DATE: 20140904
